FAERS Safety Report 4314269-5 (Version None)
Quarter: 2004Q1

REPORT INFORMATION
  Report Type: 
  Country: None (occurrence: None)
  Receive Date: 20040309
  Receipt Date: 20030821
  Transmission Date: 20041129
  Serious: Yes (Hospitalization, Other)
  Sender: FDA-Public Use
  Company Number: CA-BRISTOL-MYERS SQUIBB COMPANY-12363990

PATIENT
  Age: 42 Year
  Sex: Female

DRUGS (4)
  1. ATAZANAVIR [Suspect]
     Indication: HIV INFECTION
     Route: 048
     Dates: start: 20030717, end: 20030818
  2. STAVUDINE [Suspect]
     Indication: HIV INFECTION
     Dates: start: 20030725, end: 20030818
  3. LAMIVUDINE [Suspect]
     Indication: HIV INFECTION
     Dates: start: 20030725, end: 20030818
  4. RITONAVIR [Suspect]
     Indication: HIV INFECTION
     Route: 048
     Dates: start: 20030716, end: 20030818

REACTIONS (3)
  - APPENDICITIS [None]
  - BLOOD BILIRUBIN INCREASED [None]
  - JAUNDICE [None]
